FAERS Safety Report 4290968-9 (Version None)
Quarter: 2004Q1

REPORT INFORMATION
  Report Type: 
  Country: None (occurrence: None)
  Receive Date: 20040209
  Receipt Date: 20040126
  Transmission Date: 20041129
  Serious: Yes (Other)
  Sender: FDA-Public Use
  Company Number: 200411202GDDC

PATIENT
  Age: 70 Year
  Sex: Female
  Weight: 65 kg

DRUGS (5)
  1. FEXOFENADINE HCL [Suspect]
     Indication: RHINITIS ALLERGIC
     Dosage: PO
     Route: 048
     Dates: start: 20020510, end: 20020719
  2. BENDROFLUAZIDE [Concomitant]
  3. BECLOMETHASONE DIPROPIONATE [Concomitant]
  4. SALBUTAMOL [Concomitant]
  5. CROMOLYN SODIUM [Concomitant]

REACTIONS (1)
  - ARTHRALGIA [None]
